FAERS Safety Report 8291979-9 (Version None)
Quarter: 2012Q2

REPORT INFORMATION
  Report Type: 
  Country: None (occurrence: None)
  Receive Date: 20120417
  Receipt Date: 20120409
  Transmission Date: 20120825
  Serious: Yes (Hospitalization)
  Sender: FDA-Public Use
  Company Number: US-ELI_LILLY_AND_COMPANY-US201203003779

PATIENT
  Sex: Female

DRUGS (8)
  1. LOVASTATIN [Concomitant]
     Dosage: 1 DF, QD
  2. EVISTA [Suspect]
     Indication: OSTEOPOROSIS
     Dosage: 60 MG, QD
     Dates: start: 20020801
  3. MELOXICAM [Concomitant]
     Dosage: 1 DF, BID
  4. CALCIUM CARBONATE [Concomitant]
     Dosage: 600 MG, BID
  5. LECITHIN [Concomitant]
     Dosage: 1 DF, QD
  6. GABAPENTIN [Concomitant]
     Dosage: 3 DF, QD
  7. VITAMIN D [Concomitant]
     Dosage: 400 IU, BID
  8. ANTACIDS, OTHER COMBINATIONS [Concomitant]
     Dosage: 1 DF, BID

REACTIONS (4)
  - LOWER LIMB FRACTURE [None]
  - FEMUR FRACTURE [None]
  - BODY HEIGHT DECREASED [None]
  - WRIST FRACTURE [None]
